FAERS Safety Report 20511425 (Version 3)
Quarter: 2023Q1

REPORT INFORMATION
  Report Type: Spontaneous
  Country: US (occurrence: US)
  Receive Date: 20220224
  Receipt Date: 20230109
  Transmission Date: 20230418
  Serious: Yes (Other)
  Sender: FDA-Public Use
  Company Number: US-PFIZER INC-202200269245

PATIENT
  Age: 34 Year
  Sex: Female

DRUGS (2)
  1. VENLAFAXINE [Interacting]
     Active Substance: VENLAFAXINE HYDROCHLORIDE
     Indication: Depression
     Dosage: UNK
     Route: 065
  2. TIANEPTINE [Interacting]
     Active Substance: TIANEPTINE
     Indication: Insomnia
     Dosage: UNK
     Route: 065

REACTIONS (4)
  - Status epilepticus [Recovering/Resolving]
  - Serotonin syndrome [Recovering/Resolving]
  - Drug interaction [Recovering/Resolving]
  - Overdose [Unknown]
